FAERS Safety Report 4867222-7 (Version None)
Quarter: 2005Q4

REPORT INFORMATION
  Report Type: 
  Country: None (occurrence: None)
  Receive Date: 20051222
  Receipt Date: 20051214
  Transmission Date: 20060501
  Serious: Yes (Other)
  Sender: FDA-Public Use
  Company Number: S05-USA-05240-01

PATIENT
  Age: 50 Year
  Sex: Female

DRUGS (4)
  1. LEXAPRO [Suspect]
     Indication: DEPRESSION
     Dosage: 5 MG QD PO
     Route: 048
     Dates: start: 20051129, end: 20051208
  2. LEXAPRO [Suspect]
     Indication: DEPRESSION
     Dosage: 10 MG QD PO
     Route: 048
     Dates: start: 20051209
  3. EVOXAC [Concomitant]
  4. KLONOPIN [Concomitant]

REACTIONS (6)
  - ARTHRALGIA [None]
  - BRONCHITIS [None]
  - CONDITION AGGRAVATED [None]
  - SJOGREN'S SYNDROME [None]
  - STOMATITIS [None]
  - URINARY TRACT INFECTION [None]
